FAERS Safety Report 25298602 (Version 1)
Quarter: 2025Q2

REPORT INFORMATION
  Report Type: Spontaneous
  Country: US (occurrence: US)
  Receive Date: 20250512
  Receipt Date: 20250512
  Transmission Date: 20250717
  Serious: Yes (Other)
  Sender: JOHNSON AND JOHNSON
  Company Number: US-JNJFOC-20250509728

PATIENT
  Age: 80 Year
  Sex: Female

DRUGS (1)
  1. SIMPONI ARIA [Suspect]
     Active Substance: GOLIMUMAB
     Indication: Rheumatoid factor
     Route: 041

REACTIONS (2)
  - Hypertension [Unknown]
  - Product physical issue [Unknown]

NARRATIVE: CASE EVENT DATE: 20250508
